FAERS Safety Report 7325635 (Version 2)
Quarter: 2020Q3

REPORT INFORMATION
  Report Type: Report from Study
  Country: CA (occurrence: CA)
  Receive Date: 20100319
  Receipt Date: 20110526
  Transmission Date: 20201104
  Serious: Yes (Death, Hospitalization, Other)
  Sender: FDA-Public Use
  Company Number: CA-JNJFOC-20081101511

PATIENT
  Age: 50 Year
  Sex: Male
  Weight: 68 kg

DRUGS (25)
  1. CNTO 1275 [Suspect]
     Active Substance: USTEKINUMAB
     Route: 058
     Dates: start: 20060227
  2. CNTO 1275 [Suspect]
     Active Substance: USTEKINUMAB
     Route: 058
     Dates: start: 20070430
  3. CNTO 1275 [Suspect]
     Active Substance: USTEKINUMAB
     Route: 058
     Dates: start: 20070115
  4. PREVACID [Concomitant]
     Active Substance: LANSOPRAZOLE
     Route: 048
     Dates: start: 20080711
  5. SPIRONOLACTONE. [Concomitant]
     Active Substance: SPIRONOLACTONE
     Route: 048
     Dates: start: 20080908
  6. VENOFER [Concomitant]
     Active Substance: IRON SUCROSE
     Route: 042
     Dates: start: 20080204
  7. CNTO 1275 [Suspect]
     Active Substance: USTEKINUMAB
     Route: 058
     Dates: start: 20060626
  8. CNTO 1275 [Suspect]
     Active Substance: USTEKINUMAB
     Route: 058
     Dates: start: 20080204
  9. CNTO 1275 [Suspect]
     Active Substance: USTEKINUMAB
     Route: 058
     Dates: start: 20071203
  10. CNTO 1275 [Suspect]
     Active Substance: USTEKINUMAB
     Route: 058
     Dates: start: 20061110
  11. FELODIPINE. [Concomitant]
     Active Substance: FELODIPINE
     Route: 048
     Dates: start: 20040920
  12. CNTO 1275 [Suspect]
     Active Substance: USTEKINUMAB
     Route: 058
     Dates: start: 20070820
  13. LASIX [Concomitant]
     Active Substance: FUROSEMIDE
     Route: 048
     Dates: start: 20080910
  14. CNTO 1275 [Suspect]
     Active Substance: USTEKINUMAB
     Route: 058
     Dates: start: 20060327
  15. CNTO 1275 [Suspect]
     Active Substance: USTEKINUMAB
     Route: 058
     Dates: start: 20070625
  16. CNTO 1275 [Suspect]
     Active Substance: USTEKINUMAB
     Route: 058
     Dates: start: 20060918
  17. SLOW?K [Concomitant]
     Active Substance: POTASSIUM CHLORIDE
     Route: 048
     Dates: start: 20080908
  18. CNTO 1275 [Suspect]
     Active Substance: USTEKINUMAB
     Route: 058
     Dates: start: 20080520
  19. CNTO 1275 [Suspect]
     Active Substance: USTEKINUMAB
     Route: 058
     Dates: start: 20070309
  20. BISOPROLOL [Concomitant]
     Active Substance: BISOPROLOL
     Route: 048
     Dates: start: 20080910
  21. VITAMIN B12 [Concomitant]
     Active Substance: CYANOCOBALAMIN
     Route: 048
     Dates: start: 20080421
  22. CNTO 1275 [Suspect]
     Active Substance: USTEKINUMAB
     Indication: PSORIASIS
     Route: 058
     Dates: start: 20071015
  23. CNTO 1275 [Suspect]
     Active Substance: USTEKINUMAB
     Route: 058
     Dates: start: 20080331
  24. PERINDOPRIL [Concomitant]
     Active Substance: PERINDOPRIL
     Route: 048
     Dates: start: 20080910
  25. NEXIUM [Concomitant]
     Active Substance: ESOMEPRAZOLE MAGNESIUM
     Route: 048
     Dates: start: 20080602

REACTIONS (5)
  - Fall [Unknown]
  - Colectomy [Fatal]
  - Lymphoma [Unknown]
  - Intestinal perforation [Recovered/Resolved]
  - Laparotomy [Fatal]

NARRATIVE: CASE EVENT DATE: 20081024
